FAERS Safety Report 9264927 (Version 1)
Quarter: 2013Q2

REPORT INFORMATION
  Report Type: Spontaneous
  Country: US (occurrence: US)
  Receive Date: 20130501
  Receipt Date: 20130501
  Transmission Date: 20140414
  Serious: Yes (Hospitalization)
  Sender: FDA-Public Use
  Company Number: US-BAYER-2013-052017

PATIENT
  Age: 30 Year
  Sex: Female
  Weight: 81.8 kg

DRUGS (8)
  1. YAZ [Suspect]
     Dosage: UNK
  2. OCELLA [Suspect]
     Dosage: UNK
  3. TRAMADOL [Concomitant]
     Dosage: UNK
     Dates: start: 20100917
  4. METHYLPREDNISOLONE [Concomitant]
  5. ADVIL [Concomitant]
     Dosage: UNK UNK, TID
     Dates: start: 20101104
  6. TORADOL [Concomitant]
  7. DILAUDID [Concomitant]
  8. IBUPROFEN [Concomitant]

REACTIONS (1)
  - Pulmonary embolism [None]
